FAERS Safety Report 9997965 (Version 2)
Quarter: 2014Q2

REPORT INFORMATION
  Report Type: Spontaneous
  Country: US (occurrence: US)
  Receive Date: 20140311
  Receipt Date: 20140612
  Transmission Date: 20141212
  Serious: Yes (Life-Threatening, Hospitalization, Other)
  Sender: FDA-Public Use
  Company Number: US-FRI-1000060426

PATIENT
  Age: 63 Year
  Sex: Male
  Weight: 97 kg

DRUGS (13)
  1. DALIRESP [Suspect]
     Indication: CHRONIC OBSTRUCTIVE PULMONARY DISEASE
     Dates: start: 20120620, end: 20130915
  2. SPIRIVA [Concomitant]
  3. SYMBICORT [Concomitant]
     Dosage: TWO PUFFS
  4. FISH OIL [Concomitant]
  5. VITAMIN D [Concomitant]
  6. ASPIRIN [Concomitant]
     Dosage: 325 (DOSAGE AND FREQUENCY UNKNOWN)
  7. PAXIL [Concomitant]
  8. COREG [Concomitant]
     Dosage: ^12.5 IN AM^
  9. AMBIEN [Concomitant]
  10. LIPITOR [Concomitant]
     Dosage: 20MG
  11. CARDURA [Concomitant]
     Dosage: 8MG
  12. NEXIUM [Concomitant]
     Dosage: 40MG
  13. BENAZEPRIL [Concomitant]
     Dosage: 10MG

REACTIONS (2)
  - Pancreatitis acute [Unknown]
  - Pleural effusion [Unknown]
